FAERS Safety Report 17316757 (Version 1)
Quarter: 2020Q1

REPORT INFORMATION
  Report Type: Spontaneous
  Country: US (occurrence: US)
  Receive Date: 20200124
  Receipt Date: 20200124
  Transmission Date: 20200409
  Serious: No
  Sender: FDA-Public Use
  Company Number: US-PERRIGO-19US000606

PATIENT
  Age: 35 Month
  Sex: Male

DRUGS (2)
  1. IBUPROFEN. [Suspect]
     Active Substance: IBUPROFEN
     Indication: PYREXIA
     Dosage: 100 MG, SINGLE
     Route: 048
     Dates: start: 20181204, end: 20181204
  2. AMOXICILLIN. [Concomitant]
     Active Substance: AMOXICILLIN
     Indication: EAR INFECTION
     Dosage: 6.5 ML, BID
     Route: 048
     Dates: start: 20181128, end: 20181206

REACTIONS (4)
  - Feeling abnormal [Recovering/Resolving]
  - Tremor [Recovering/Resolving]
  - Euphoric mood [Recovering/Resolving]
  - Psychomotor hyperactivity [Recovering/Resolving]

NARRATIVE: CASE EVENT DATE: 20181204
